FAERS Safety Report 15083172 (Version 8)
Quarter: 2018Q3

REPORT INFORMATION
  Report Type: Report from Study
  Country: DK (occurrence: DK)
  Receive Date: 20180628
  Receipt Date: 20180920
  Transmission Date: 20181010
  Serious: Yes (Other)
  Sender: FDA-Public Use
  Company Number: DK-TAKEDA-2018MPI007921

PATIENT
  Age: 73 Year
  Sex: Male

DRUGS (22)
  1. BORTEZOMIB. [Suspect]
     Active Substance: BORTEZOMIB
     Dosage: 18.4 MG/M2, 1/WEEK
     Route: 058
     Dates: start: 20180529, end: 20180607
  2. DEXAMETHASONE. [Suspect]
     Active Substance: DEXAMETHASONE
     Dosage: 480 MG, 1/WEEK
     Route: 048
     Dates: start: 20180412, end: 20180422
  3. DEXAMETHASONE. [Suspect]
     Active Substance: DEXAMETHASONE
     Dosage: 160 MG, 1/WEEK
     Route: 048
     Dates: start: 20180326, end: 20180328
  4. DEXAMETHASONE. [Suspect]
     Active Substance: DEXAMETHASONE
     Dosage: 160 MG, 1/WEEK
     Route: 048
     Dates: start: 20180326, end: 20180407
  5. BORTEZOMIB. [Suspect]
     Active Substance: BORTEZOMIB
     Dosage: UNK
     Route: 058
     Dates: start: 20180316, end: 20180325
  6. BORTEZOMIB. [Suspect]
     Active Substance: BORTEZOMIB
     Dosage: 15.6 MG/M2, 1/WEEK
     Route: 058
     Dates: start: 20180412, end: 20180422
  7. BORTEZOMIB. [Suspect]
     Active Substance: BORTEZOMIB
     Dosage: 18.4 MG/M2, UNK
     Route: 058
     Dates: start: 20180508, end: 20180519
  8. DEXAMETHASONE. [Suspect]
     Active Substance: DEXAMETHASONE
     Dosage: 640 MG, 1/WEEK
     Route: 048
     Dates: start: 20180529, end: 20180607
  9. REVLIMID [Suspect]
     Active Substance: LENALIDOMIDE
     Dosage: 100 MG, 1/WEEK
     Route: 048
     Dates: start: 20180529, end: 20180607
  10. BORTEZOMIB. [Suspect]
     Active Substance: BORTEZOMIB
     Dosage: 5 MG/M2, 1/WEEK
     Route: 058
     Dates: start: 20180326, end: 20180328
  11. BORTEZOMIB. [Suspect]
     Active Substance: BORTEZOMIB
     Dosage: 15 MG/M2, 1/WEEK
     Route: 058
     Dates: start: 20180330, end: 20180407
  12. DEXAMETHASONE. [Suspect]
     Active Substance: DEXAMETHASONE
     Indication: PLASMA CELL MYELOMA
     Dosage: 120 MG, UNK
     Route: 048
     Dates: start: 20180305, end: 20180314
  13. BORTEZOMIB. [Suspect]
     Active Substance: BORTEZOMIB
     Dosage: UNK
     Route: 058
     Dates: start: 20180503, end: 20180505
  14. DEXAMETHASONE. [Suspect]
     Active Substance: DEXAMETHASONE
     Dosage: 640 MG, 1/WEEK
     Route: 048
     Dates: start: 20180508, end: 20180519
  15. DEXAMETHASONE. [Suspect]
     Active Substance: DEXAMETHASONE
     Dosage: UNK
     Route: 048
     Dates: start: 20180316, end: 20180325
  16. REVLIMID [Suspect]
     Active Substance: LENALIDOMIDE
     Indication: PLASMA CELL MYELOMA
     Dosage: 80 MG, QD
     Route: 048
     Dates: start: 20180305, end: 20180314
  17. REVLIMID [Suspect]
     Active Substance: LENALIDOMIDE
     Dosage: 30 MG, QD
     Route: 048
     Dates: start: 20180326, end: 20180328
  18. REVLIMID [Suspect]
     Active Substance: LENALIDOMIDE
     Dosage: 350 MG, 1/WEEK
     Route: 048
     Dates: start: 20180330, end: 20180407
  19. BORTEZOMIB. [Suspect]
     Active Substance: BORTEZOMIB
     Indication: PLASMA CELL MYELOMA
     Dosage: 15.6 MG/M2, QD
     Route: 058
     Dates: start: 20180305, end: 20180314
  20. DEXAMETHASONE. [Suspect]
     Active Substance: DEXAMETHASONE
     Dosage: 480 MG, 1/WEEK
     Route: 048
     Dates: start: 20180330, end: 20180407
  21. REVLIMID [Suspect]
     Active Substance: LENALIDOMIDE
     Dosage: 600 MG, 1/WEEK
     Route: 048
     Dates: start: 20180412, end: 20180422
  22. REVLIMID [Suspect]
     Active Substance: LENALIDOMIDE
     Dosage: 720 MG, 1/WEEK
     Route: 048
     Dates: start: 20180508, end: 20180519

REACTIONS (7)
  - Neutropenia [Recovered/Resolved]
  - Fungal infection [Recovered/Resolved]
  - Thrombocytopenia [Recovered/Resolved]
  - Dyspnoea [Recovered/Resolved]
  - Fatigue [Recovered/Resolved]
  - Dizziness [Recovered/Resolved]
  - Anaemia [Recovered/Resolved]

NARRATIVE: CASE EVENT DATE: 20180503
